FAERS Safety Report 4522779-0 (Version None)
Quarter: 2004Q4

REPORT INFORMATION
  Report Type: 
  Country: None (occurrence: None)
  Receive Date: 20041207
  Receipt Date: 20041119
  Transmission Date: 20050328
  Serious: Yes (Hospitalization)
  Sender: FDA-Public Use
  Company Number: F01200403680

PATIENT
  Age: 65 Year
  Sex: Female

DRUGS (3)
  1. OXALIPLATIN [Suspect]
     Indication: ADENOCARCINOMA PANCREAS
     Dosage: 100 MG/M2 ON DAY 2, Q2W INTRAVENOUS NOS
     Route: 042
     Dates: start: 20041006, end: 20041006
  2. GEMZAR [Suspect]
     Dosage: 1000 MG/M2 ON DAY 1, Q2W INTRAVENOUS NOS
     Route: 042
     Dates: start: 20041005, end: 20041005
  3. METFORMIN HCL [Concomitant]

REACTIONS (2)
  - DIABETES MELLITUS INADEQUATE CONTROL [None]
  - GENERAL PHYSICAL HEALTH DETERIORATION [None]
